FAERS Safety Report 25728999 (Version 4)
Quarter: 2025Q4

REPORT INFORMATION
  Report Type: Report from Study
  Country: EU (occurrence: EU)
  Receive Date: 20250827
  Receipt Date: 20251211
  Transmission Date: 20260117
  Serious: Yes (Death, Life-Threatening)
  Sender: ABBVIE
  Company Number: EU-ABBVIE-6431514

PATIENT
  Age: 76 Year
  Sex: Male

DRUGS (18)
  1. VENCLEXTA [Suspect]
     Active Substance: VENETOCLAX
     Indication: Acute myeloid leukaemia
     Dosage: RAMP UP DOSE
     Route: 048
     Dates: start: 20240726, end: 20240726
  2. VENCLEXTA [Suspect]
     Active Substance: VENETOCLAX
     Indication: Acute myeloid leukaemia
     Dosage: RAMP UP DOSE
     Route: 048
     Dates: start: 20240727, end: 20240727
  3. VENCLEXTA [Suspect]
     Active Substance: VENETOCLAX
     Indication: Acute myeloid leukaemia
     Dosage: RAMP UP DOSE
     Route: 048
     Dates: start: 20240728, end: 20240728
  4. VENCLEXTA [Suspect]
     Active Substance: VENETOCLAX
     Indication: Acute myeloid leukaemia
     Dosage: END OF CYCLE (28 DAYS)
     Route: 048
     Dates: start: 20240729, end: 20240815
  5. VENCLEXTA [Suspect]
     Active Substance: VENETOCLAX
     Indication: Acute myeloid leukaemia
     Dosage: END OF CYCLE (28 DAYS)
     Route: 048
     Dates: start: 20240822, end: 20240904
  6. POSACONAZOLE [Concomitant]
     Active Substance: POSACONAZOLE
     Indication: Antifungal prophylaxis
     Route: 048
     Dates: start: 20240726, end: 20240914
  7. ZOFRAN [Concomitant]
     Active Substance: ONDANSETRON HYDROCHLORIDE
     Indication: Prophylaxis of nausea and vomiting
     Route: 042
     Dates: start: 20240726, end: 20240801
  8. ALLOPURINOL [Concomitant]
     Active Substance: ALLOPURINOL
     Indication: Prophylaxis
     Route: 048
     Dates: start: 20240726, end: 20240914
  9. ACYCLOVIR [Concomitant]
     Active Substance: ACYCLOVIR
     Indication: Antiviral prophylaxis
     Route: 048
     Dates: start: 20240726, end: 20241004
  10. AZACITIDINE [Suspect]
     Active Substance: AZACITIDINE
     Indication: Acute myeloid leukaemia
     Dosage: END OF CYCLE(7 DAYS)
     Route: 048
     Dates: start: 20240726, end: 20240801
  11. AZACITIDINE [Suspect]
     Active Substance: AZACITIDINE
     Indication: Acute myeloid leukaemia
     Dosage: END OF CYCLE(7 DAYS)
     Route: 048
     Dates: start: 20240822, end: 20240828
  12. CEFEPIME [Concomitant]
     Active Substance: CEFEPIME HYDROCHLORIDE
     Indication: Product used for unknown indication
     Dosage: TIME INTERVAL: 0.33333333 DAYS
     Route: 042
     Dates: start: 20240814, end: 20240822
  13. METRONIDAZOLE [Concomitant]
     Active Substance: METRONIDAZOLE
     Indication: Product used for unknown indication
     Route: 042
     Dates: start: 20240814, end: 20240819
  14. Tazocin [Concomitant]
     Indication: Streptococcal infection
     Dosage: TIME INTERVAL: 0.33333333 DAYS
     Route: 042
     Dates: start: 20240830, end: 20240910
  15. Tazocin [Concomitant]
     Indication: Streptococcal infection
     Dosage: TIME INTERVAL: 0.33333333 DAYS
     Route: 042
     Dates: start: 20240727, end: 20240731
  16. AMIKACIN [Concomitant]
     Active Substance: AMIKACIN
     Indication: Streptococcal infection
     Route: 042
     Dates: start: 20240830, end: 20240905
  17. AMIKACIN [Concomitant]
     Active Substance: AMIKACIN
     Indication: Streptococcal infection
     Route: 042
     Dates: start: 20240727, end: 20240729
  18. AMIKACIN [Concomitant]
     Active Substance: AMIKACIN
     Indication: Streptococcal infection
     Route: 042
     Dates: start: 20240814, end: 20240817

REACTIONS (1)
  - Disease progression [Fatal]

NARRATIVE: CASE EVENT DATE: 20240904
